FAERS Safety Report 6578338-1 (Version None)
Quarter: 2010Q1

REPORT INFORMATION
  Report Type: 
  Country: None (occurrence: None)
  Receive Date: 20100211
  Receipt Date: 20100201
  Transmission Date: 20100710
  Serious: Yes (Hospitalization)
  Sender: FDA-Public Use
  Company Number: US-ROCHE-668570

PATIENT

DRUGS (3)
  1. BEVACIZUMAB [Suspect]
     Dosage: 15 MG/KG, Q21D
     Route: 042
     Dates: start: 20090313, end: 20091218
  2. OCTREOTIDE ACETATE [Suspect]
     Dosage: 100 UG, X1
     Route: 058
  3. SANDOSTATIN LAR [Suspect]
     Dosage: 20 MG, Q21D
     Route: 030
     Dates: start: 20090313

REACTIONS (2)
  - ABDOMINAL DISTENSION [None]
  - SMALL INTESTINAL OBSTRUCTION [None]
